FAERS Safety Report 5136764-1 (Version None)
Quarter: 2006Q4

REPORT INFORMATION
  Report Type: 
  Country: None (occurrence: None)
  Receive Date: 20061023
  Receipt Date: 20061011
  Transmission Date: 20070319
  Serious: Yes (Other)
  Sender: FDA-Public Use
  Company Number: 2006125775

PATIENT
  Sex: Male

DRUGS (6)
  1. LIPITOR [Suspect]
     Dosage: 20 MG (20 MG, 1 N 1 D)
  2. HYDROCHLOROTHIAZIDE [Concomitant]
  3. METOPROLOL TARTRATE [Concomitant]
  4. ADVAIR DISKUS 100/50 [Concomitant]
  5. ALBUTEROL [Concomitant]
  6. IPRATROPIUM BROMIDE [Concomitant]

REACTIONS (5)
  - FLATULENCE [None]
  - INFECTION [None]
  - LUNG NEOPLASM MALIGNANT [None]
  - MUSCULAR WEAKNESS [None]
  - NAUSEA [None]
